FAERS Safety Report 19817063 (Version 13)
Quarter: 2023Q1

REPORT INFORMATION
  Report Type: Report from Study
  Country: US (occurrence: US)
  Receive Date: 20210910
  Receipt Date: 20230302
  Transmission Date: 20230417
  Serious: Yes (Other)
  Sender: FDA-Public Use
  Company Number: US-PFIZER INC-2021399239

PATIENT
  Age: 90 Year
  Sex: Female

DRUGS (4)
  1. XALATAN [Suspect]
     Active Substance: LATANOPROST
     Indication: Glaucoma
     Dosage: 1 GTT DROPS, TO BOTH EYES (2.5 ML WAS REPORTED)
     Route: 047
  2. XALATAN [Suspect]
     Active Substance: LATANOPROST
     Dosage: UNK, Q2D ALTERNATE DAY (EVERY OTHER DAY)
     Route: 065
  3. NORVASC [Concomitant]
     Active Substance: AMLODIPINE BESYLATE
     Indication: Blood pressure abnormal
     Dosage: UNK
     Route: 065
  4. LIPITOR [Concomitant]
     Active Substance: ATORVASTATIN CALCIUM
     Indication: Product used for unknown indication
     Dosage: UNK
     Route: 065

REACTIONS (29)
  - Fall [Unknown]
  - Concussion [Unknown]
  - Ejection fraction decreased [Unknown]
  - Allergic reaction to excipient [Unknown]
  - Memory impairment [Unknown]
  - Hypoacusis [Unknown]
  - Weight decreased [Unknown]
  - Neck injury [Unknown]
  - Skeletal injury [Unknown]
  - Spinal column injury [Unknown]
  - Therapeutic response unexpected [Unknown]
  - Arthropathy [Unknown]
  - Weight increased [Unknown]
  - Stress [Unknown]
  - Visual impairment [Unknown]
  - Cardiac disorder [Unknown]
  - Asthenia [Unknown]
  - Diarrhoea [Recovered/Resolved]
  - Eye irritation [Unknown]
  - Eye disorder [Unknown]
  - Product dose omission issue [Unknown]
  - Expired product administered [Unknown]
  - Intentional product misuse [Unknown]
  - Rib fracture [Unknown]
  - Headache [Unknown]
  - Hypoaesthesia [Unknown]
  - Localised infection [Unknown]
  - Sinus disorder [Unknown]
  - Burning sensation [Unknown]

NARRATIVE: CASE EVENT DATE: 20210407
